FAERS Safety Report 16199767 (Version 1)
Quarter: 2019Q2

REPORT INFORMATION
  Report Type: Spontaneous
  Country: None (occurrence: US)
  Receive Date: 20190415
  Receipt Date: 20190415
  Transmission Date: 20190711
  Serious: No
  Sender: FDA-Public Use
  Company Number: US-BIOGEN-2015BI113525

PATIENT
  Age: 66 Year
  Sex: Female

DRUGS (5)
  1. BACLOFEN. [Concomitant]
     Active Substance: BACLOFEN
     Indication: DIARRHOEA
     Route: 065
  2. TECFIDERA [Suspect]
     Active Substance: DIMETHYL FUMARATE
     Route: 048
     Dates: start: 2015
  3. MELOXICAM. [Concomitant]
     Active Substance: MELOXICAM
     Route: 065
  4. TECFIDERA [Suspect]
     Active Substance: DIMETHYL FUMARATE
     Route: 048
     Dates: start: 20150729
  5. TECFIDERA [Suspect]
     Active Substance: DIMETHYL FUMARATE
     Indication: MULTIPLE SCLEROSIS
     Route: 048
     Dates: start: 20150729

REACTIONS (11)
  - Feeling hot [Not Recovered/Not Resolved]
  - Diarrhoea [Not Recovered/Not Resolved]
  - Dyspepsia [Not Recovered/Not Resolved]
  - Hyperhidrosis [Not Recovered/Not Resolved]
  - Discomfort [Not Recovered/Not Resolved]
  - Abdominal discomfort [Unknown]
  - Abdominal pain upper [Not Recovered/Not Resolved]
  - Gastrointestinal disorder [Unknown]
  - Muscular weakness [Not Recovered/Not Resolved]
  - Asthenia [Not Recovered/Not Resolved]
  - Dizziness [Not Recovered/Not Resolved]

NARRATIVE: CASE EVENT DATE: 20150812
